FAERS Safety Report 7995955-2 (Version None)
Quarter: 2011Q4

REPORT INFORMATION
  Report Type: 
  Country: None (occurrence: None)
  Receive Date: 20111220
  Receipt Date: 20111209
  Transmission Date: 20120403
  Serious: Yes (Hospitalization)
  Sender: FDA-Public Use
  Company Number: US-PERRIGO-11US010825

PATIENT
  Age: 28 Year
  Sex: Male

DRUGS (7)
  1. PROCHLORPERAZINE [Suspect]
     Indication: VOMITING
  2. PROCHLORPERAZINE [Suspect]
     Indication: NAUSEA
     Dosage: 2 DOSES
     Route: 065
  3. PHENYTOIN [Concomitant]
     Indication: PRODUCT USED FOR UNKNOWN INDICATION
     Dosage: 300 MG AT BEDTIME
     Route: 065
  4. VALPROIC ACID [Concomitant]
     Indication: PRODUCT USED FOR UNKNOWN INDICATION
     Dosage: 500 MG, BID
     Route: 065
  5. LORAZEPAM [Concomitant]
     Indication: PRODUCT USED FOR UNKNOWN INDICATION
     Dosage: 2MG 3 TIMES A DAY PRN
     Route: 048
  6. BROMOCRIPTINE MESYLATE [Concomitant]
     Indication: PRODUCT USED FOR UNKNOWN INDICATION
     Dosage: 5MG EVERY 12 HOURS
     Route: 065
  7. LORAZEPAM [Concomitant]
     Route: 030

REACTIONS (6)
  - MUSCLE RIGIDITY [None]
  - CONVULSION [None]
  - HYPERTHERMIA [None]
  - AGITATION [None]
  - TACHYCARDIA [None]
  - NEUROLEPTIC MALIGNANT SYNDROME [None]
